FAERS Safety Report 8960996 (Version 3)
Quarter: 2013Q2

REPORT INFORMATION
  Report Type: Report from Study
  Country: TW (occurrence: TW)
  Receive Date: 20121212
  Receipt Date: 20130411
  Transmission Date: 20140414
  Serious: Yes (Hospitalization)
  Sender: FDA-Public Use
  Company Number: TW-CELGENEUS-153-21880-12120028

PATIENT
  Age: 77 Year
  Sex: Male
  Weight: 62.6 kg

DRUGS (6)
  1. REVLIMID [Suspect]
     Indication: PLASMA CELL MYELOMA
     Dosage: 25 MILLIGRAM
     Route: 048
     Dates: start: 20110621, end: 20110711
  2. REVLIMID [Suspect]
     Route: 048
     Dates: start: 20121113, end: 20121116
  3. ACETAMINOPHEN [Concomitant]
     Indication: PAIN
     Dosage: 2000 MILLIGRAM
     Route: 065
  4. ASPIRINE [Concomitant]
     Indication: THROMBOSIS PROPHYLAXIS
     Dosage: 100 MILLIGRAM
     Route: 065
  5. DIPYRIDAMOLE [Concomitant]
     Indication: THROMBOSIS PROPHYLAXIS
     Dosage: 300 MILLIGRAM
     Route: 065
  6. ZINC GLUCONATE [Concomitant]
     Indication: SUPPLEMENTATION THERAPY
     Dosage: 156 MILLIGRAM
     Route: 065

REACTIONS (1)
  - Basal cell carcinoma [Recovered/Resolved]
